FAERS Safety Report 6344554-7 (Version None)
Quarter: 2009Q3

REPORT INFORMATION
  Report Type: 
  Country: None (occurrence: None)
  Receive Date: 20090908
  Receipt Date: 20090810
  Transmission Date: 20100115
  Serious: No
  Sender: FDA-Public Use
  Company Number: US-BAYER-200913330BCC

PATIENT
  Age: 75 Year
  Sex: Female
  Weight: 53 kg

DRUGS (9)
  1. ALEVE (CAPLET) [Suspect]
     Indication: RHEUMATOID ARTHRITIS
     Dosage: TOTAL DAILY DOSE: 220 MG  UNIT DOSE: 220 MG
     Route: 048
     Dates: start: 20090807, end: 20090807
  2. ALEVE (CAPLET) [Suspect]
     Dosage: TOTAL DAILY DOSE: 220 MG  UNIT DOSE: 220 MG
     Route: 048
     Dates: start: 20090810, end: 20090810
  3. INDOMETHACIN [Concomitant]
     Route: 065
  4. BETA GLUCAN [Concomitant]
     Route: 065
  5. EXTRA STRENGTH EXCEDRIN [Concomitant]
     Route: 065
  6. UNKNOWN MULTIVITAMIN [Concomitant]
     Route: 065
  7. VITAMIN E [Concomitant]
     Route: 065
  8. TRI VITA B12 [Concomitant]
     Route: 060
  9. REJUVETOL [Concomitant]
     Route: 065

REACTIONS (2)
  - PRURITUS [None]
  - RASH PAPULAR [None]
